FAERS Safety Report 10043260 (Version 1)
Quarter: 2014Q1

REPORT INFORMATION
  Report Type: Spontaneous
  Country: US (occurrence: None)
  Receive Date: 20140327
  Receipt Date: 20140327
  Transmission Date: 20141002
  Serious: Yes (Life-Threatening, Other)
  Sender: FDA-Public Use
  Company Number: None

PATIENT
  Age: 40 Year
  Sex: Female
  Weight: 48.54 kg

DRUGS (3)
  1. BACLOFEN [Suspect]
     Indication: BACK PAIN
     Dosage: 1 TWICE/DY 1-2/BT AS IN DOSE/AMOUNT TAKEN BY MOUTH
     Route: 048
     Dates: start: 20140318
  2. BACLOFEN [Suspect]
     Indication: SPINAL DISORDER
     Dosage: 1 TWICE/DY 1-2/BT AS IN DOSE/AMOUNT TAKEN BY MOUTH
     Route: 048
     Dates: start: 20140318
  3. BACLOFEN [Suspect]
     Indication: ARTHROPATHY
     Dosage: 1 TWICE/DY 1-2/BT AS IN DOSE/AMOUNT TAKEN BY MOUTH
     Route: 048
     Dates: start: 20140318

REACTIONS (6)
  - Dyspnoea [None]
  - Confusional state [None]
  - Clumsiness [None]
  - Muscle twitching [None]
  - Depression [None]
  - Drug ineffective [None]
